FAERS Safety Report 5128354-1 (Version None)
Quarter: 2006Q4

REPORT INFORMATION
  Report Type: 
  Country: None (occurrence: None)
  Receive Date: 20061011
  Receipt Date: 20051013
  Transmission Date: 20070319
  Serious: Yes (Death, Hospitalization, Other)
  Sender: FDA-Public Use
  Company Number: 2005BH002332

PATIENT
  Age: 71 Year
  Sex: Female
  Weight: 81.2 kg

DRUGS (15)
  1. EXTRANEAL [Suspect]
     Indication: RENAL FAILURE CHRONIC
     Dosage: 2000 ML; EVERY AM; IP
     Dates: start: 20050828, end: 20050909
  2. EPOGEN [Concomitant]
  3. PIOGLITAZONE HCL [Concomitant]
  4. ALLEGRA [Concomitant]
  5. ASPIRIN [Concomitant]
  6. HUMULIN N [Concomitant]
  7. LOPERAMIDE [Concomitant]
  8. PAXIL [Concomitant]
  9. PHOSLO [Concomitant]
  10. TYLENOL [Concomitant]
  11. XALATAN [Concomitant]
  12. SIMVASTATIN [Concomitant]
  13. ANTIBIOTICS FOR TOPICAL USE [Concomitant]
  14. HUMULIN R [Concomitant]
  15. PANTOPRAZOLE SODIUM [Concomitant]

REACTIONS (2)
  - CARDIAC FAILURE [None]
  - FLUID OVERLOAD [None]
